FAERS Safety Report 7218238-7 (Version None)
Quarter: 2011Q1

REPORT INFORMATION
  Report Type: 
  Country: None (occurrence: None)
  Receive Date: 20110110
  Receipt Date: 20110107
  Transmission Date: 20110831
  Serious: Yes (Other)
  Sender: FDA-Public Use
  Company Number: US-PFIZER INC-2011004725

PATIENT
  Sex: Male
  Weight: 77.098 kg

DRUGS (5)
  1. LIPITOR [Suspect]
     Indication: CORONARY ARTERIAL STENT INSERTION
     Dosage: 40 MG, 1X/DAY
     Route: 048
     Dates: start: 20101230, end: 20101231
  2. METOPROLOL TARTRATE [Concomitant]
     Indication: CORONARY ARTERIAL STENT INSERTION
     Dosage: 25 MG, UNK
     Route: 048
  3. LEVOTHYROXINE [Concomitant]
     Indication: THYROID DISORDER
     Dosage: 50 UG, 1X/DAY
     Route: 048
  4. ASPIRIN [Concomitant]
     Indication: CORONARY ARTERIAL STENT INSERTION
     Dosage: 325 MG, 1X/DAY
     Route: 048
  5. PLAVIX [Concomitant]
     Indication: ATHEROSCLEROSIS PROPHYLAXIS
     Dosage: 75 MG, 1X/DAY
     Route: 048

REACTIONS (3)
  - DYSPNOEA [None]
  - MUSCLE SPASMS [None]
  - SWOLLEN TONGUE [None]
